FAERS Safety Report 12146114 (Version 4)
Quarter: 2016Q4

REPORT INFORMATION
  Report Type: Report from Study
  Country: DE (occurrence: DE)
  Receive Date: 20160304
  Receipt Date: 20161122
  Transmission Date: 20170207
  Serious: Yes (Other)
  Sender: FDA-Public Use
  Company Number: DE-BAYER-2016-038626

PATIENT
  Age: 23 Year
  Sex: Female
  Weight: 55 kg

DRUGS (1)
  1. BETAFERON [Suspect]
     Active Substance: INTERFERON BETA-1B
     Indication: MULTIPLE SCLEROSIS
     Dosage: UNK UNK, QOD
     Route: 058
     Dates: start: 20160201, end: 20160222

REACTIONS (7)
  - Breech presentation [None]
  - Speech disorder [None]
  - Hemianaesthesia [None]
  - Maternal exposure during pregnancy [Unknown]
  - Premature labour [None]
  - Foetal death [None]
  - Premature rupture of membranes [None]
